FAERS Safety Report 25524613 (Version 1)
Quarter: 2025Q3

REPORT INFORMATION
  Report Type: Spontaneous
  Country: CA (occurrence: CA)
  Receive Date: 20250707
  Receipt Date: 20250707
  Transmission Date: 20251021
  Serious: Yes (Other)
  Sender: MYLAN
  Company Number: CA-MYLANLABS-2025M1055241

PATIENT
  Age: 47 Year
  Sex: Male

DRUGS (6)
  1. ISOTRETINOIN [Suspect]
     Active Substance: ISOTRETINOIN
     Indication: Hidradenitis
  2. CEPHALEXIN [Suspect]
     Active Substance: CEPHALEXIN
     Indication: Hidradenitis
  3. CIPROFLOXACIN [Suspect]
     Active Substance: CIPROFLOXACIN
     Indication: Hidradenitis
  4. CLOXACILLIN [Suspect]
     Active Substance: CLOXACILLIN
     Indication: Hidradenitis
  5. PENICILLIN V [Suspect]
     Active Substance: PENICILLIN V
     Indication: Hidradenitis
  6. TETRACYCLINE [Suspect]
     Active Substance: TETRACYCLINE
     Indication: Hidradenitis

REACTIONS (3)
  - Hidradenitis [Unknown]
  - Disease progression [Unknown]
  - Product use in unapproved indication [Unknown]
